FAERS Safety Report 6435111-2 (Version None)
Quarter: 2009Q4

REPORT INFORMATION
  Report Type: 
  Country: None (occurrence: None)
  Receive Date: 20091110
  Receipt Date: 20091027
  Transmission Date: 20100525
  Serious: No
  Sender: FDA-Public Use
  Company Number: US-B.I. PHARMACEUTICALS,INC./RIDGEFIELD-2009-BP-12465BP

PATIENT
  Age: 87 Year
  Sex: Female

DRUGS (5)
  1. COMBIVENT [Suspect]
     Indication: CHRONIC OBSTRUCTIVE PULMONARY DISEASE
     Dosage: 4 PUF
     Route: 055
     Dates: start: 20090914
  2. SYNTHROID [Concomitant]
     Indication: HYPOTHYROIDISM
  3. BP PILL [Concomitant]
     Indication: HYPERTENSION
  4. WATER PILL [Concomitant]
     Indication: FLUID RETENTION
  5. CHOLESTEROL PILL [Concomitant]
     Indication: BLOOD CHOLESTEROL INCREASED

REACTIONS (3)
  - ABNORMAL SENSATION IN EYE [None]
  - DRUG EFFECT DECREASED [None]
  - DRY EYE [None]
